FAERS Safety Report 20861078 (Version 1)
Quarter: 2022Q2

REPORT INFORMATION
  Report Type: Spontaneous
  Country: CA (occurrence: None)
  Receive Date: 20220523
  Receipt Date: 20220523
  Transmission Date: 20220721
  Serious: Yes (Hospitalization, Other)
  Sender: FDA-Public Use
  Company Number: CA-Fresenius Kabi-FK202205839

PATIENT
  Age: 36 Year
  Sex: Male

DRUGS (1)
  1. SODIUM CHLORIDE [Suspect]
     Active Substance: SODIUM CHLORIDE
     Indication: Postoperative care
     Dosage: UNK
     Route: 065

REACTIONS (1)
  - Hypernatraemia [Recovered/Resolved]
